FAERS Safety Report 5530660-3 (Version None)
Quarter: 2007Q4

REPORT INFORMATION
  Report Type: 
  Country: None (occurrence: None)
  Receive Date: 20071130
  Receipt Date: 20071129
  Transmission Date: 20080405
  Serious: Yes (Other)
  Sender: FDA-Public Use
  Company Number: D0054722A

PATIENT
  Age: 74 Year
  Sex: Male

DRUGS (10)
  1. ARIXTRA [Suspect]
     Dosage: 2.5ML UNKNOWN
     Route: 058
     Dates: start: 20070821, end: 20070911
  2. DIGIMERCK MINOR [Concomitant]
     Route: 065
  3. ENALAPRIL MALEATE + HYDROCHLOROTHIAZIDE [Concomitant]
     Route: 065
  4. FURORESE [Concomitant]
     Dosage: 80MG PER DAY
     Route: 065
  5. TROMCARDIN [Concomitant]
     Route: 065
  6. ALLOPURINOL [Concomitant]
     Route: 065
  7. SIMVASTATIN [Concomitant]
     Dosage: 20MG PER DAY
     Route: 065
  8. MAGNETRANS [Concomitant]
     Route: 065
  9. MARCUMAR [Concomitant]
     Route: 065
     Dates: start: 20070101, end: 20070801
  10. IBUPROFEN [Concomitant]
     Dosage: 600MG THREE TIMES PER DAY
     Route: 065

REACTIONS (7)
  - ANGINA PECTORIS [None]
  - CHEST PAIN [None]
  - DIZZINESS [None]
  - DRUG INTOLERANCE [None]
  - DYSPNOEA [None]
  - SOMNOLENCE [None]
  - TACHYCARDIA [None]
